FAERS Safety Report 17554323 (Version 1)
Quarter: 2020Q1

REPORT INFORMATION
  Report Type: Spontaneous
  Country: GB (occurrence: GB)
  Receive Date: 20200318
  Receipt Date: 20200318
  Transmission Date: 20200409
  Serious: Yes (Other)
  Sender: FDA-Public Use
  Company Number: GB-AUROBINDO-AUR-APL-2020-013274

PATIENT
  Age: 3 Year
  Sex: Male

DRUGS (2)
  1. MONTELUKAST [Suspect]
     Active Substance: MONTELUKAST SODIUM
     Indication: COUGH
     Dosage: 4 MILLIGRAM, ONCE A DAY
     Route: 048
     Dates: start: 20190903, end: 20200130
  2. SALBUTAMOL [Concomitant]
     Active Substance: ALBUTEROL
     Indication: PRODUCT USED FOR UNKNOWN INDICATION
     Dosage: UNK
     Route: 065

REACTIONS (7)
  - Neurodevelopmental disorder [Not Recovered/Not Resolved]
  - Social avoidant behaviour [Recovering/Resolving]
  - Anxiety [Recovering/Resolving]
  - Speech disorder [Recovering/Resolving]
  - Psychomotor skills impaired [Recovering/Resolving]
  - Disturbance in social behaviour [Recovering/Resolving]
  - Somnolence [Recovering/Resolving]
